FAERS Safety Report 7060861-7 (Version None)
Quarter: 2010Q4

REPORT INFORMATION
  Report Type: 
  Country: None (occurrence: None)
  Receive Date: 20101025
  Receipt Date: 20101018
  Transmission Date: 20110411
  Serious: Yes (Other)
  Sender: FDA-Public Use
  Company Number: ES-ABBOTT-10P-144-0678981-00

PATIENT
  Age: 31 Year
  Sex: Female

DRUGS (2)
  1. HUMIRA [Suspect]
     Indication: CROHN'S DISEASE
     Route: 058
     Dates: start: 20080901
  2. MICOFENOLATO DE MOFETILO [Interacting]
     Indication: CROHN'S DISEASE
     Route: 048
     Dates: start: 20080901

REACTIONS (2)
  - DRUG INTERACTION [None]
  - PNEUMONIA [None]
